FAERS Safety Report 6509972-2 (Version None)
Quarter: 2009Q4

REPORT INFORMATION
  Report Type: 
  Country: None (occurrence: None)
  Receive Date: 20091222
  Receipt Date: 20091214
  Transmission Date: 20100525
  Serious: Yes (Hospitalization)
  Sender: FDA-Public Use
  Company Number: FR-NOVOPROD-302127

PATIENT

DRUGS (1)
  1. NOVOSEVEN [Suspect]
     Indication: PROPHYLAXIS
     Dosage: 133.3 UG/KG, UNK
     Dates: start: 20071016, end: 20080326

REACTIONS (1)
  - CANDIDA SEPSIS [None]
